FAERS Safety Report 5965808-X (Version None)
Quarter: 2008Q4

REPORT INFORMATION
  Report Type: 
  Country: None (occurrence: None)
  Receive Date: 20081121
  Receipt Date: 20081114
  Transmission Date: 20090506
  Serious: Yes (Hospitalization)
  Sender: FDA-Public Use
  Company Number: PAR_02431_2008

PATIENT
  Sex: Male

DRUGS (1)
  1. CAPOTEN [Suspect]
     Indication: DRUG USE FOR UNKNOWN INDICATION
     Dosage: 6 MG TID
     Dates: start: 20080101, end: 20080101

REACTIONS (4)
  - LETHARGY [None]
  - PRODUCT QUALITY ISSUE [None]
  - SWELLING [None]
  - VOMITING [None]
